FAERS Safety Report 5679687-1 (Version None)
Quarter: 2008Q1

REPORT INFORMATION
  Report Type: 
  Country: None (occurrence: None)
  Receive Date: 20080325
  Receipt Date: 20080314
  Transmission Date: 20080703
  Serious: Yes (Disabling)
  Sender: FDA-Public Use
  Company Number: US-GILEAD-2008-0015007

PATIENT
  Sex: Male
  Weight: 134.38 kg

DRUGS (7)
  1. LETAIRIS [Suspect]
     Indication: PULMONARY HYPERTENSION
     Route: 048
     Dates: start: 20071201, end: 20071201
  2. DIGOXIN [Concomitant]
     Route: 048
  3. SPIRONOLACTONE [Concomitant]
     Route: 048
  4. METOPROLOL TARTRATE [Concomitant]
     Route: 048
  5. ENALAPRIL MALEATE [Concomitant]
     Route: 048
  6. TORSEMIDE [Concomitant]
     Route: 048
  7. CARDIZEM [Concomitant]
     Route: 048

REACTIONS (4)
  - DYSPNOEA [None]
  - HEADACHE [None]
  - PRURITUS [None]
  - RASH [None]
